FAERS Safety Report 9948631 (Version 3)
Quarter: 2014Q4

REPORT INFORMATION
  Report Type: Report from Study
  Country: BR (occurrence: BR)
  Receive Date: 20140303
  Receipt Date: 20141001
  Transmission Date: 20150529
  Serious: Yes (Other)
  Sender: FDA-Public Use
  Company Number: BR-ROCHE-1334294

PATIENT
  Sex: Female
  Weight: 79 kg

DRUGS (8)
  1. PURAN [Concomitant]
     Active Substance: LEVOTHYROXINE SODIUM
     Indication: THYROID DISORDER
  2. TIBOLONE [Concomitant]
     Active Substance: TIBOLONE
  3. SIMVASTATIN. [Concomitant]
     Active Substance: SIMVASTATIN
  4. RIVOTRIL [Concomitant]
     Active Substance: CLONAZEPAM
  5. LEVOFLOXACIN. [Concomitant]
     Active Substance: LEVOFLOXACIN
  6. FOLIC ACID. [Concomitant]
     Active Substance: FOLIC ACID
  7. VENLAFAXINE [Concomitant]
     Active Substance: VENLAFAXINE HYDROCHLORIDE
  8. MABTHERA [Suspect]
     Active Substance: RITUXIMAB
     Indication: RHEUMATOID ARTHRITIS
     Route: 042
     Dates: start: 20130816, end: 20130902

REACTIONS (3)
  - Weight increased [Recovered/Resolved]
  - Blood test abnormal [Unknown]
  - Lymphocyte count decreased [Unknown]
